FAERS Safety Report 9484985 (Version 2)
Quarter: 2013Q3

REPORT INFORMATION
  Report Type: Spontaneous
  Country: US (occurrence: US)
  Receive Date: 20130828
  Receipt Date: 20130828
  Transmission Date: 20140515
  Serious: No
  Sender: FDA-Public Use
  Company Number: US-ABBOTT-13P-163-1106556-00

PATIENT
  Sex: Male
  Weight: 81.72 kg

DRUGS (1)
  1. ANDROGEL [Suspect]
     Indication: BLOOD TESTOSTERONE DECREASED
     Dosage: 2 PACKETS PER DAY
     Dates: start: 2009

REACTIONS (4)
  - Blood viscosity increased [Not Recovered/Not Resolved]
  - Red blood cell count increased [Unknown]
  - Drug effect delayed [Recovered/Resolved]
  - Diverticulum [Recovered/Resolved]
